FAERS Safety Report 9296171 (Version 1)
Quarter: 2013Q2

REPORT INFORMATION
  Report Type: Spontaneous
  Country: US (occurrence: US)
  Receive Date: 20130517
  Receipt Date: 20130517
  Transmission Date: 20140414
  Serious: Yes (Other)
  Sender: FDA-Public Use
  Company Number: US-BAYER-2013-060215

PATIENT
  Age: 28 Year
  Sex: Female
  Weight: 78.91 kg

DRUGS (7)
  1. YAZ [Suspect]
  2. YASMIN [Suspect]
     Indication: POLYCYSTIC OVARIES
  3. VICODIN [Concomitant]
     Dosage: UNK
     Dates: end: 20080317
  4. AMOXICILLIN [Concomitant]
     Dosage: UNK
     Dates: end: 20080317
  5. PROZAC [Concomitant]
     Dosage: 20 MG, UNK
  6. XANAX [Concomitant]
  7. FOLIC ACID [Concomitant]

REACTIONS (1)
  - Deep vein thrombosis [Recovered/Resolved]
